FAERS Safety Report 8820179 (Version 3)
Quarter: 2012Q4

REPORT INFORMATION
  Report Type: 
  Country: US (occurrence: US)
  Receive Date: 20121002
  Receipt Date: 20121113
  Transmission Date: 20130627
  Serious: Yes (Other)
  Sender: FDA-Public Use
  Company Number: US-009507513-1209USA008782

PATIENT
  Age: 48 Year
  Sex: Male
  Weight: 61.32 kg

DRUGS (13)
  1. PEGINTERFERON ALFA-2B [Suspect]
     Indication: HEPATITIS C
     Dosage: 96 Microgram, qw
     Route: 058
     Dates: start: 20120820, end: 20120917
  2. PEGINTERFERON ALFA-2B [Suspect]
     Dosage: 60 Microgram, qw
     Route: 058
     Dates: start: 20120919
  3. REBETOL [Suspect]
     Dosage: 800 mg, bid
     Route: 048
     Dates: start: 20120820, end: 20120917
  4. VICTRELIS [Suspect]
     Dosage: 800 mg, tid
     Route: 048
  5. NEUPOGEN [Concomitant]
     Dosage: 300 Microgram, qd
     Route: 058
  6. COMPAZINE [Concomitant]
     Indication: NAUSEA
     Dosage: 5 to 10 mg, q6h, prn
     Route: 048
  7. AUGMENTIN [Concomitant]
     Dosage: 1 DF, q12h
     Route: 048
  8. ZOLOFT [Concomitant]
     Dosage: 100 mg, qam
     Route: 048
  9. IBUPROFEN [Concomitant]
     Dosage: 600 mg, tid
     Route: 048
  10. ATRIPLA [Concomitant]
     Dosage: 1 DF, qd
     Route: 048
  11. AMOXICILLIN [Concomitant]
     Dosage: 875 mg, tid
     Route: 048
  12. TRIAMCINOLONE [Concomitant]
     Dosage: twice a day as needed
     Route: 061
  13. SERTRALINE HYDROCHLORIDE [Concomitant]
     Dosage: 50 mg, qd
     Route: 048

REACTIONS (1)
  - Neutropenia [Recovered/Resolved]
